FAERS Safety Report 4324679-8 (Version None)
Quarter: 2004Q1

REPORT INFORMATION
  Report Type: 
  Country: None (occurrence: None)
  Receive Date: 20040325
  Receipt Date: 20400319
  Transmission Date: 20041129
  Serious: Yes (Hospitalization)
  Sender: FDA-Public Use
  Company Number: 04-03-0407

PATIENT
  Age: 53 Year
  Sex: Male

DRUGS (3)
  1. RANITIDINE [Suspect]
     Dosage: 300MG QD ORAL
     Route: 048
  2. ATORVASTATIN [Concomitant]
  3. CLOPIDOGREL [Concomitant]

REACTIONS (6)
  - ACUTE GENERALISED EXANTHEMATOUS PUSTULOSIS [None]
  - DERMATITIS CONTACT [None]
  - EPIDERMAL NECROSIS [None]
  - ERYTHEMA MULTIFORME [None]
  - OEDEMA PERIPHERAL [None]
  - SKIN TEST POSITIVE [None]
